FAERS Safety Report 18425644 (Version 2)
Quarter: 2020Q4

REPORT INFORMATION
  Report Type: Report from Study
  Country: US (occurrence: US)
  Receive Date: 20201026
  Receipt Date: 20201102
  Transmission Date: 20210114
  Serious: Yes (Other)
  Sender: FDA-Public Use
  Company Number: US-TEVA-2020-US-1841601

PATIENT
  Age: 45 Year
  Sex: Female

DRUGS (1)
  1. AUSTEDO [Suspect]
     Active Substance: DEUTETRABENAZINE
     Indication: TARDIVE DYSKINESIA
     Route: 065
     Dates: start: 20200823, end: 20201020

REACTIONS (5)
  - Patient dissatisfaction with treatment [Unknown]
  - Depression [Recovering/Resolving]
  - Drug ineffective [Unknown]
  - Suicidal ideation [Recovering/Resolving]
  - Fear [Recovering/Resolving]

NARRATIVE: CASE EVENT DATE: 2020
